FAERS Safety Report 18521970 (Version 1)
Quarter: 2020Q4

REPORT INFORMATION
  Report Type: Report from Study
  Country: US (occurrence: US)
  Receive Date: 20201119
  Receipt Date: 20201119
  Transmission Date: 20210114
  Serious: Yes (Other)
  Sender: FDA-Public Use
  Company Number: US-MYLANLABS-2020M1095491

PATIENT
  Age: 33 Year
  Sex: Male

DRUGS (1)
  1. EVEROLIMUS. [Suspect]
     Active Substance: EVEROLIMUS
     Indication: THYMOMA
     Dosage: UNK, ONCE DAILY
     Route: 048

REACTIONS (2)
  - Mucosal inflammation [Recovering/Resolving]
  - Pancytopenia [Recovering/Resolving]
